FAERS Safety Report 15508690 (Version 1)
Quarter: 2018Q4

REPORT INFORMATION
  Report Type: Spontaneous
  Country: US (occurrence: US)
  Receive Date: 20181010
  Receipt Date: 20181010
  Transmission Date: 20190205
  Serious: Yes (Death)
  Sender: FDA-Public Use
  Company Number: None

PATIENT
  Age: 75 Year
  Sex: Female
  Weight: 87 kg

DRUGS (2)
  1. ALTEPLASE. [Suspect]
     Active Substance: ALTEPLASE
     Route: 042
  2. ACTIVASE [Suspect]
     Active Substance: ALTEPLASE
     Indication: CEREBROVASCULAR ACCIDENT
     Route: 042
     Dates: start: 20180926

REACTIONS (2)
  - Urticaria [None]
  - Cerebral haemorrhage [None]

NARRATIVE: CASE EVENT DATE: 20180927
